FAERS Safety Report 15269170 (Version 2)
Quarter: 2019Q1

REPORT INFORMATION
  Report Type: Spontaneous
  Country: US (occurrence: US)
  Receive Date: 20180813
  Receipt Date: 20190104
  Transmission Date: 20190417
  Serious: Yes (Death, Other)
  Sender: FDA-Public Use
  Company Number: US-VANDA PHARMACEUTICALS, INC-2018TASUS002426

PATIENT
  Age: 69 Year
  Sex: Female

DRUGS (1)
  1. HETLIOZ [Suspect]
     Active Substance: TASIMELTEON
     Indication: BLINDNESS
     Dosage: 20 MG, QHS
     Route: 048

REACTIONS (2)
  - Neoplasm malignant [Unknown]
  - Death [Fatal]

NARRATIVE: CASE EVENT DATE: 20181212
